FAERS Safety Report 6354842-6 (Version None)
Quarter: 2009Q3

REPORT INFORMATION
  Report Type: 
  Country: None (occurrence: None)
  Receive Date: 20090914
  Receipt Date: 20090902
  Transmission Date: 20100115
  Serious: Yes (Death, Life-Threatening, Hospitalization, Disabling)
  Sender: FDA-Public Use
  Company Number: JP-ABBOTT-07P-087-0360248-00

PATIENT
  Age: 71 Year
  Sex: Male

DRUGS (15)
  1. LEUPLIN SR FOR INJECTION KIT [Suspect]
     Indication: PROSTATE CANCER STAGE IV
     Route: 058
     Dates: start: 20060106, end: 20071214
  2. LEUPLIN SR FOR INJECTION KIT [Suspect]
     Dates: start: 20060331, end: 20060331
  3. LEUPLIN SR FOR INJECTION KIT [Suspect]
     Dates: start: 20060623, end: 20060623
  4. LEUPLIN SR FOR INJECTION KIT [Suspect]
     Dates: start: 20060915, end: 20060915
  5. LEUPLIN SR FOR INJECTION KIT [Suspect]
     Dates: start: 20061206, end: 20061206
  6. LEUPLIN SR FOR INJECTION KIT [Suspect]
     Dates: start: 20070306, end: 20070306
  7. LEUPLIN SR FOR INJECTION KIT [Suspect]
     Dates: start: 20070601, end: 20070601
  8. LEUPLIN SR FOR INJECTION KIT [Suspect]
     Dates: start: 20071003, end: 20071003
  9. LEUPLIN SR FOR INJECTION KIT [Suspect]
     Dates: start: 20071226, end: 20071226
  10. LEUPLIN SR FOR INJECTION KIT [Suspect]
  11. TAMSULOSIN HYDROCHLORIDE [Concomitant]
     Indication: BENIGN PROSTATIC HYPERPLASIA
     Route: 048
     Dates: start: 20050502, end: 20060526
  12. CHLORMADINONE ACETATE TAB [Concomitant]
     Indication: PROSTATE CANCER STAGE IV
     Route: 048
     Dates: start: 20061108, end: 20070531
  13. DEXAMETHASONE [Concomitant]
     Indication: PROSTATE CANCER STAGE IV
     Route: 048
     Dates: start: 20070601, end: 20070720
  14. ALBUMIN (HUMAN) [Concomitant]
     Indication: HYPOPROTEINAEMIA
     Route: 042
     Dates: start: 20071221, end: 20071223
  15. ALBUMIN (HUMAN) [Concomitant]
     Indication: ASCITES

REACTIONS (9)
  - ALANINE AMINOTRANSFERASE INCREASED [None]
  - ASPARTATE AMINOTRANSFERASE INCREASED [None]
  - GAMMA-GLUTAMYLTRANSFERASE INCREASED [None]
  - HEPATIC CIRRHOSIS [None]
  - HYPOPROTEINAEMIA [None]
  - LIVER DISORDER [None]
  - MALAISE [None]
  - OEDEMA DUE TO HEPATIC DISEASE [None]
  - PERITONITIS BACTERIAL [None]
